FAERS Safety Report 20760948 (Version 1)
Quarter: 2022Q2

REPORT INFORMATION
  Report Type: Report from Study
  Country: US (occurrence: US)
  Receive Date: 20220428
  Receipt Date: 20220428
  Transmission Date: 20220721
  Serious: Yes (Other)
  Sender: FDA-Public Use
  Company Number: US-BRISTOL-MYERS SQUIBB COMPANY-2022-022680

PATIENT
  Age: 61 Year
  Sex: Male

DRUGS (1)
  1. REVLIMID [Suspect]
     Active Substance: LENALIDOMIDE
     Indication: Von Willebrand^s disease
     Dosage: 21 OUT OF 28 DAYS
     Route: 048

REACTIONS (3)
  - Bone marrow disorder [Unknown]
  - Peripheral swelling [Unknown]
  - Off label use [Unknown]
